FAERS Safety Report 9450021 (Version 1)
Quarter: 2013Q3

REPORT INFORMATION
  Report Type: Spontaneous
  Country: IT (occurrence: IT)
  Receive Date: 20130809
  Receipt Date: 20130809
  Transmission Date: 20140515
  Serious: Yes (Death)
  Sender: FDA-Public Use
  Company Number: IT-PFIZER INC-2013229779

PATIENT
  Age: 84 Year
  Sex: Female

DRUGS (11)
  1. UNASYN [Suspect]
     Indication: PYREXIA
     Dosage: 300 MG DAILY
     Route: 042
     Dates: start: 20130715, end: 20130716
  2. ALLOPURINOL [Suspect]
     Indication: HYPERURICAEMIA
     Dosage: 150 MG DAILY
     Route: 048
     Dates: end: 20130715
  3. ACETYLSALICYLIC ACID [Concomitant]
     Dosage: UNK
  4. LANSOPRAZOLE [Concomitant]
     Dosage: UNK
  5. FUROSEMIDE [Concomitant]
     Dosage: UNK
  6. BISOPROLOL FUMARATE [Concomitant]
     Dosage: UNK
  7. STILNOX [Concomitant]
     Dosage: UNK
  8. MADOPAR [Concomitant]
     Dosage: UNK
  9. CALCIPARINA [Concomitant]
     Dosage: UNK
  10. APIDRA [Concomitant]
     Dosage: UNK
  11. LEVEMIR [Concomitant]
     Dosage: UNK

REACTIONS (1)
  - Stevens-Johnson syndrome [Fatal]
